FAERS Safety Report 5971092 (Version 17)
Quarter: 2013Q3

REPORT INFORMATION
  Report Type: Spontaneous
  Country: US (occurrence: US)
  Receive Date: 20060127
  Receipt Date: 20130719
  Transmission Date: 20140515
  Serious: Yes (Other)
  Sender: FDA-Public Use
  Company Number: PHEH2006US01235

PATIENT
  Age: 44 Year
  Sex: Female
  Weight: 75.28 kg

DRUGS (30)
  1. ZOMETA [Suspect]
     Dosage: 4 MG, Q3MO
     Dates: start: 20031118, end: 200502
  2. AREDIA [Suspect]
     Route: 042
  3. ZOLOFT [Concomitant]
  4. CYCLOBENZAPRINE HYDROCHLORIDE [Concomitant]
  5. ALPRAZOLAM [Concomitant]
  6. HYDROCODONE W/ACETAMINOPHEN [Concomitant]
  7. CIPROFLOXACIN [Concomitant]
  8. ERYTHROMYCIN [Concomitant]
  9. VENLAFAXINE HYDROCHLORIDE [Concomitant]
  10. LORAZEPAM [Concomitant]
  11. ZOFRAN [Concomitant]
  12. DECADRON                                /CAN/ [Concomitant]
  13. COMPAZINE [Concomitant]
  14. ORUVAIL [Concomitant]
  15. AMITRIPTYLINE HYDROCHLORIDE [Concomitant]
  16. XANAX [Concomitant]
  17. NOLVADEX [Concomitant]
  18. VIOXX [Concomitant]
  19. PREVACID [Concomitant]
  20. EFFEXOR-XR [Concomitant]
  21. FLEXERIL [Concomitant]
  22. HYDROCHLOROTHIAZIDE [Concomitant]
  23. IBUPROFEN [Concomitant]
  24. NEURONTIN [Concomitant]
  25. OYSTER SHELL CALCIUM WITH VITAMIN D [Concomitant]
  26. DALTEPARIN [Concomitant]
  27. PROTONIX ^PHARMACIA^ [Concomitant]
  28. REGLAN                                  /USA/ [Concomitant]
  29. PHENERGAN ^AVENTIS PHARMA^ [Concomitant]
  30. PANNAZ [Concomitant]

REACTIONS (66)
  - Uterine cancer [Unknown]
  - Second primary malignancy [Unknown]
  - Neoplasm skin [Unknown]
  - Depression [Unknown]
  - Osteonecrosis of jaw [Unknown]
  - Alveolar osteitis [Unknown]
  - Pain [Unknown]
  - Impaired healing [Unknown]
  - Oral discharge [Unknown]
  - Bone disorder [Unknown]
  - Bone formation decreased [Unknown]
  - Bone fragmentation [Unknown]
  - Primary sequestrum [Unknown]
  - Herpes zoster [Unknown]
  - Pneumonia bacterial [Unknown]
  - Cough [Unknown]
  - Upper respiratory tract infection [Unknown]
  - Pyrexia [Unknown]
  - Arteriosclerosis [Unknown]
  - Amnesia [Unknown]
  - Rotator cuff syndrome [Unknown]
  - Anxiety [Unknown]
  - Gastrooesophageal reflux disease [Unknown]
  - Chest pain [Unknown]
  - Abdominal pain [Unknown]
  - Hypoaesthesia [Unknown]
  - Muscle spasms [Unknown]
  - Pollakiuria [Unknown]
  - Pelvic pain [Unknown]
  - Dyspareunia [Unknown]
  - Cystocele [Unknown]
  - Rectocele [Unknown]
  - Diarrhoea [Unknown]
  - Back pain [Not Recovered/Not Resolved]
  - Musculoskeletal pain [Not Recovered/Not Resolved]
  - Neck pain [Unknown]
  - Acute sinusitis [Unknown]
  - Fall [Unknown]
  - Road traffic accident [Unknown]
  - Musculoskeletal stiffness [Unknown]
  - Pain in extremity [Unknown]
  - Hypertension [Unknown]
  - Dyspnoea [Unknown]
  - Thyroid neoplasm [Unknown]
  - Transient ischaemic attack [Unknown]
  - Carpal tunnel syndrome [Unknown]
  - Otitis media [Unknown]
  - Familial tremor [Unknown]
  - Osteoarthritis [Unknown]
  - Oedema peripheral [Unknown]
  - Ovarian epithelial cancer [Unknown]
  - Intervertebral disc degeneration [Unknown]
  - Cognitive disorder [Unknown]
  - Paraneoplastic syndrome [Unknown]
  - Hypertrophy [Unknown]
  - Soft tissue disorder [Unknown]
  - Spinal osteoarthritis [Unknown]
  - Paraesthesia [Unknown]
  - Calcinosis [Unknown]
  - Headache [Unknown]
  - Dizziness [Unknown]
  - Hypokalaemia [Unknown]
  - Neck injury [Unknown]
  - Vertebral foraminal stenosis [Unknown]
  - Gastrointestinal bacterial infection [Unknown]
  - Pain in jaw [Unknown]
